FAERS Safety Report 5410264-3 (Version None)
Quarter: 2007Q3

REPORT INFORMATION
  Report Type: 
  Country: None (occurrence: None)
  Receive Date: 20070808
  Receipt Date: 20070731
  Transmission Date: 20080115
  Serious: Yes (Death, Other)
  Sender: FDA-Public Use
  Company Number: 17128

PATIENT
  Age: 56 Year
  Sex: Male

DRUGS (6)
  1. CARBOPLATIN [Suspect]
     Indication: ADENOCARCINOMA
  2. PACLITAXEL [Suspect]
     Indication: ADENOCARCINOMA
  3. ERLOTINIB [Suspect]
     Indication: ADENOCARCINOMA
     Dosage: 100 MG
  4. ERLOTINIB [Suspect]
     Indication: ADENOCARCINOMA
     Dosage: 150 MG
  5. CORTICOSTEROIDS [Concomitant]
  6. ANTIBIOTICS [Concomitant]

REACTIONS (3)
  - DRUG INTERACTION [None]
  - INTERSTITIAL LUNG DISEASE [None]
  - LUNG INFILTRATION [None]
